FAERS Safety Report 6722945-X (Version None)
Quarter: 2010Q2

REPORT INFORMATION
  Report Type: 
  Country: None (occurrence: None)
  Receive Date: 20100513
  Receipt Date: 20100505
  Transmission Date: 20101027
  Serious: Yes (Other)
  Sender: FDA-Public Use
  Company Number: US-BIOGENIDEC-2010BI002418

PATIENT
  Age: 34 Year
  Sex: Male

DRUGS (1)
  1. AVONEX [Suspect]
     Indication: MULTIPLE SCLEROSIS
     Route: 030
     Dates: start: 20100109

REACTIONS (7)
  - CARDIAC DISORDER [None]
  - CHILLS [None]
  - CONVULSION [None]
  - INFLUENZA LIKE ILLNESS [None]
  - SYNCOPE [None]
  - VERTIGO [None]
  - VISUAL PATHWAY DISORDER [None]
